FAERS Safety Report 9675782 (Version 2)
Quarter: 2014Q1

REPORT INFORMATION
  Report Type: Spontaneous
  Country: US (occurrence: None)
  Receive Date: 20131105
  Receipt Date: 20140228
  Transmission Date: 20141002
  Serious: Yes (Other)
  Sender: FDA-Public Use
  Company Number: 2013-US-002574

PATIENT
  Age: 40 Year
  Sex: Female

DRUGS (2)
  1. XYREM [Suspect]
     Indication: NARCOLEPSY
     Route: 048
     Dates: start: 201003, end: 201004
  2. ADDERALL XR (AMFETAMINE ASPERATE, AMFETAMINE SULFATE, DEXAMFETAMINE SACCHARATE, DEXAMFETAMINE SULFATE) [Concomitant]

REACTIONS (7)
  - Sleep apnoea syndrome [None]
  - Somnolence [None]
  - Stress [None]
  - Narcolepsy [None]
  - Cataplexy [None]
  - Sleep apnoea syndrome [None]
  - Fatigue [None]
